FAERS Safety Report 6233885-7 (Version None)
Quarter: 2009Q2

REPORT INFORMATION
  Report Type: 
  Country: None (occurrence: None)
  Receive Date: 20090616
  Receipt Date: 20090616
  Transmission Date: 20091009
  Serious: No
  Sender: FDA-Public Use
  Company Number: None

PATIENT
  Age: 13 Year
  Sex: Male
  Weight: 74.3899 kg

DRUGS (1)
  1. DEXPAK 1.5 MG ECR PHARMACEUTICALS [Suspect]
     Indication: DERMATITIS CONTACT
     Dosage: TAPERED MORN/ EVENING PO
     Route: 048
     Dates: start: 20090606, end: 20090609

REACTIONS (12)
  - ABDOMINAL PAIN UPPER [None]
  - DIARRHOEA [None]
  - DISCOMFORT [None]
  - MUSCLE SPASMS [None]
  - MUSCULOSKELETAL STIFFNESS [None]
  - OEDEMA MOUTH [None]
  - POLLAKIURIA [None]
  - SENSATION OF FOREIGN BODY [None]
  - SWELLING [None]
  - SWELLING FACE [None]
  - THIRST [None]
  - TONGUE DISORDER [None]
